FAERS Safety Report 24608058 (Version 1)
Quarter: 2024Q4

REPORT INFORMATION
  Report Type: Spontaneous
  Country: CH (occurrence: CH)
  Receive Date: 20241112
  Receipt Date: 20241112
  Transmission Date: 20250115
  Serious: Yes (Hospitalization, Other)
  Sender: MYLAN
  Company Number: None

PATIENT
  Age: 90 Year
  Sex: Female
  Weight: 80 kg

DRUGS (14)
  1. TORSEMIDE [Suspect]
     Active Substance: TORSEMIDE
     Indication: Cardiac failure chronic
     Dosage: 30 MILLIGRAM, QD (10 MG 3-0-0)
     Route: 048
     Dates: end: 20240901
  2. PREGABALIN [Suspect]
     Active Substance: PREGABALIN
     Indication: Product used for unknown indication
     Dosage: 75 MILLIGRAM, BID (1-0-1 (PAUSED))
     Route: 065
     Dates: end: 20240901
  3. ALDACTONE [Suspect]
     Active Substance: SPIRONOLACTONE
     Indication: Cardiac failure chronic
     Dosage: 50 MILLIGRAM, QD
     Route: 048
     Dates: end: 20240901
  4. SULFAMETHOXAZOLE\TRIMETHOPRIM [Suspect]
     Active Substance: SULFAMETHOXAZOLE\TRIMETHOPRIM
     Indication: Urinary tract infection
     Dosage: 1 DOSAGE FORM, BID (800/160 MG MG 1-0-0-1)
     Route: 048
     Dates: start: 20240830, end: 20240901
  5. LISINOPRIL [Suspect]
     Active Substance: LISINOPRIL
     Indication: Hypertensive heart disease
     Dosage: 5 MILLIGRAM, QD (1-0-0-0, NOT SURE IF TEMPORARILY PAUSED AT ADMISSION)
     Route: 048
  6. DAPAGLIFLOZIN [Concomitant]
     Active Substance: DAPAGLIFLOZIN
     Dosage: 10 MILLIGRAM, QD
     Route: 048
     Dates: end: 20240901
  7. ELIQUIS [Concomitant]
     Active Substance: APIXABAN
     Indication: Atrial fibrillation
     Dosage: 2.5 MILLIGRAM, BID
     Route: 048
  8. RYZODEG 70/30 [Concomitant]
     Active Substance: INSULIN ASPART\INSULIN DEGLUDEC
     Indication: Insulin-requiring type 2 diabetes mellitus
     Dosage: 18 DOSAGE FORM, QD (100 E/ML FLEXTOUCH UNITS 0-0-18)
     Route: 058
  9. NOVORAPID [Concomitant]
     Active Substance: INSULIN ASPART
     Indication: Insulin-requiring type 2 diabetes mellitus
     Dosage: UNK, PRN (AS NECESSARY)
     Route: 058
  10. SPIRIVA [Concomitant]
     Active Substance: TIOTROPIUM BROMIDE MONOHYDRATE
     Dosage: 18 MICROGRAM, QD
     Route: 055
     Dates: end: 20240901
  11. ZOLPIDEM TARTRATE [Concomitant]
     Active Substance: ZOLPIDEM TARTRATE
     Indication: Insomnia
     Dosage: 5 MILLIGRAM, QD
     Route: 048
  12. DAFALGAN [Concomitant]
     Active Substance: ACETAMINOPHEN
     Indication: Pain
     Dosage: 500 MILLIGRAM, PRN (AS NECESSARY, 500 MG EVERY 6 HOURS IF NEEDED IN MODERATE PAIN AND FEVER)
     Route: 048
  13. DAFALGAN [Concomitant]
     Active Substance: ACETAMINOPHEN
     Indication: Pyrexia
  14. VALVERDE SCHLAF [Concomitant]
     Indication: Insomnia
     Dosage: 1 DOSAGE FORM, PRN (AS NECESSARY, 1X 60 MG /250 MG ON DEMAND AT NIGHT)
     Route: 048

REACTIONS (2)
  - Hyperkalaemia [Recovered/Resolved]
  - Acute kidney injury [Recovering/Resolving]

NARRATIVE: CASE EVENT DATE: 20240901
